FAERS Safety Report 9713074 (Version 1)
Quarter: 2013Q4

REPORT INFORMATION
  Report Type: Spontaneous
  Country: US (occurrence: US)
  Receive Date: 20131126
  Receipt Date: 20131126
  Transmission Date: 20140711
  Serious: No
  Sender: FDA-Public Use
  Company Number: US-BRISTOL-MYERS SQUIBB COMPANY-19412642

PATIENT
  Age: 69 Year
  Sex: Female
  Weight: 101.58 kg

DRUGS (1)
  1. BYDUREON [Suspect]
     Dosage: PRESCRIPTION #RX 132341075100
     Route: 058

REACTIONS (4)
  - Nausea [Not Recovered/Not Resolved]
  - Dizziness [Not Recovered/Not Resolved]
  - Injection site extravasation [Unknown]
  - Product quality issue [Unknown]
